FAERS Safety Report 10629991 (Version 1)
Quarter: 2014Q4

REPORT INFORMATION
  Report Type: Spontaneous
  Country: US (occurrence: None)
  Receive Date: 20141203
  Receipt Date: 20141203
  Transmission Date: 20150529
  Serious: Yes (Other)
  Sender: FDA-Public Use
  Company Number: None

PATIENT
  Age: 53 Year
  Sex: Female
  Weight: 71.67 kg

DRUGS (1)
  1. LATUDA [Suspect]
     Active Substance: LURASIDONE HYDROCHLORIDE
     Indication: BIPOLAR I DISORDER
     Dosage: 1 PILL, AT BEDTIME, TAKEN BY MOUTH
     Route: 048

REACTIONS (3)
  - Panic attack [None]
  - Restless legs syndrome [None]
  - Anxiety [None]

NARRATIVE: CASE EVENT DATE: 20141201
